FAERS Safety Report 13148890 (Version 2)
Quarter: 2017Q1

REPORT INFORMATION
  Report Type: Spontaneous
  Country: US (occurrence: US)
  Receive Date: 20170125
  Receipt Date: 20170301
  Transmission Date: 20170428
  Serious: No
  Sender: FDA-Public Use
  Company Number: US-PFIZER INC-2017031675

PATIENT
  Age: 50 Year
  Sex: Female
  Weight: 59.87 kg

DRUGS (35)
  1. PROAIR HFA [Concomitant]
     Active Substance: ALBUTEROL SULFATE
     Indication: WHEEZING
     Dosage: UNK UNK, AS NEEDED [108 (90 BASE) INHALE TWO PUFFS BY MOUTH EVERY 4 HOURS ]]
     Route: 048
     Dates: start: 20160715
  2. ZOLOFT [Concomitant]
     Active Substance: SERTRALINE HYDROCHLORIDE
     Indication: PANIC DISORDER
  3. VITAMIN D3 [Concomitant]
     Active Substance: CHOLECALCIFEROL
     Dosage: 5000 IU, WEEKLY [EVERY 7 DAYS]
     Route: 048
  4. SYNTHROID [Concomitant]
     Active Substance: LEVOTHYROXINE SODIUM
     Dosage: 75 UG, 1X/DAY [IN THE MORNING BEFORE BREAKFAST, TAKE DOS WITH A SIP OF WATER]
     Route: 048
     Dates: start: 20161209
  5. MICRO-K [Concomitant]
     Active Substance: POTASSIUM CHLORIDE
     Dosage: 10 MEQ, 1X/DAY
     Route: 048
     Dates: start: 20160408
  6. LYRICA [Suspect]
     Active Substance: PREGABALIN
     Indication: AXONAL NEUROPATHY
     Dosage: 150MG IN MORNING, 150 MG IN AFTERNOON AND 300 MG AT BED TIME
     Route: 048
     Dates: start: 2016, end: 20170112
  7. MIDODRINE [Concomitant]
     Active Substance: MIDODRINE
     Indication: HYPOTENSION
     Dosage: 10 MG, 3X/DAY
  8. ALPRAZOLAM. [Concomitant]
     Active Substance: ALPRAZOLAM
     Indication: AGORAPHOBIA
  9. LIPITOR [Concomitant]
     Active Substance: ATORVASTATIN CALCIUM
     Dosage: 40 MG, 1X/DAY [IN THE EVENING)
     Route: 048
  10. CENTRUM MULTIGUMMIES [Concomitant]
     Dosage: 1 DF, DAILY
     Route: 048
  11. DESYREL [Concomitant]
     Active Substance: TRAZODONE HYDROCHLORIDE
     Indication: INSOMNIA
  12. ALPRAZOLAM. [Concomitant]
     Active Substance: ALPRAZOLAM
     Indication: POST-TRAUMATIC STRESS DISORDER
  13. VITAMIN B COMPLEX [Concomitant]
     Active Substance: CYANOCOBALAMIN\DEXPANTHENOL\NIACINAMIDE\PYRIDOXINE HYDROCHLORIDE\RIBOFLAVIN 5^-PHOSPHATE SODIUM\THIAMINE HYDROCHLORIDE\VITAMIN B COMPLEX
     Dosage: 500 UG, 2X/DAY
     Route: 048
  14. MAGNESIUM [Concomitant]
     Active Substance: MAGNESIUM
     Dosage: 250 MG, DAILY
     Route: 048
  15. PRILOSEC [Concomitant]
     Active Substance: OMEPRAZOLE MAGNESIUM
     Dosage: 40 MG, 2X/DAY
     Route: 048
     Dates: start: 20170127
  16. POLYETHYLENE GLYCOL [Concomitant]
     Active Substance: POLYETHYLENE GLYCOLS
     Dosage: 17 G, AS NEEDED [DAILY AS NEEDED. DISSOLVE IN 4-8 OZ. OF LIQUID-ORAL]
     Route: 048
  17. ZOLOFT [Concomitant]
     Active Substance: SERTRALINE HYDROCHLORIDE
     Indication: POST-TRAUMATIC STRESS DISORDER
  18. ZOLOFT [Concomitant]
     Active Substance: SERTRALINE HYDROCHLORIDE
     Indication: AGORAPHOBIA
  19. AMIODARONE [Concomitant]
     Active Substance: AMIODARONE
     Dosage: 10 MG, 3X/DAY
  20. ALPRAZOLAM. [Concomitant]
     Active Substance: ALPRAZOLAM
     Indication: ANXIETY
     Dosage: 2 MG, DAILY [TAKE 0.5 TABS BY MOUTH 4 TIMES DAILY]
     Route: 048
     Dates: start: 20170208
  21. LYRICA [Suspect]
     Active Substance: PREGABALIN
     Indication: NEURALGIA
     Dosage: 600 MG, DAILY [TAKE 150 MG IN THE MORNING, 150 MG IN THE AFTERNOON, AND 300 MG AT BEDTIME]
     Route: 048
     Dates: start: 20170213
  22. ZOLOFT [Concomitant]
     Active Substance: SERTRALINE HYDROCHLORIDE
     Indication: ANXIETY
  23. DESYREL [Concomitant]
     Active Substance: TRAZODONE HYDROCHLORIDE
     Indication: MOOD DISORDER DUE TO A GENERAL MEDICAL CONDITION
     Dosage: 150 MG, 1X/DAY (NIGHTLY)
     Route: 048
     Dates: start: 20170124
  24. DESYREL [Concomitant]
     Active Substance: TRAZODONE HYDROCHLORIDE
     Indication: ANXIETY
  25. ALPHA LIPOIC ACID [Concomitant]
     Active Substance: .ALPHA.-LIPOIC ACID
     Dosage: 200 MG, 3X/DAY
     Route: 048
  26. PLAVIX [Concomitant]
     Active Substance: CLOPIDOGREL BISULFATE
     Dosage: 75 MG, 1X/DAY
     Route: 048
     Dates: start: 20161110
  27. NORCO [Concomitant]
     Active Substance: ACETAMINOPHEN\HYDROCODONE BITARTRATE
     Indication: PAIN
     Dosage: 1 DF, AS NEEDED Q6H [HYDROCODONE BITARTRATE: 5 MG/ PARACETAMOL: 325 MG]
     Route: 048
     Dates: start: 20170110
  28. PROAMATINE [Concomitant]
     Active Substance: MIDODRINE HYDROCHLORIDE
     Dosage: 10 MG, 3X/DAY
     Route: 048
     Dates: start: 20170127
  29. SEROQUEL [Concomitant]
     Active Substance: QUETIAPINE FUMARATE
     Indication: MOOD DISORDER DUE TO A GENERAL MEDICAL CONDITION
     Dosage: 50 MG, 1X/DAY (NIGHTLY)
     Route: 048
     Dates: start: 20170124
  30. SEROQUEL [Concomitant]
     Active Substance: QUETIAPINE FUMARATE
     Indication: ANXIETY
  31. SEROQUEL [Concomitant]
     Active Substance: QUETIAPINE FUMARATE
     Indication: INSOMNIA
  32. ALPRAZOLAM. [Concomitant]
     Active Substance: ALPRAZOLAM
     Indication: PANIC DISORDER
  33. ASPIRIN. [Concomitant]
     Active Substance: ASPIRIN
     Dosage: 81 MG, DAILY
     Route: 048
     Dates: start: 20150128
  34. PREMARIN [Concomitant]
     Active Substance: ESTROGENS, CONJUGATED
     Dosage: 1 DF, 1X/DAY [EVERY EVENING , QPM]
     Route: 067
  35. ZOLOFT [Concomitant]
     Active Substance: SERTRALINE HYDROCHLORIDE
     Indication: MOOD DISORDER DUE TO A GENERAL MEDICAL CONDITION
     Dosage: 200 MG, 1X/DAY [NIGHTLY]
     Route: 048
     Dates: start: 20170124

REACTIONS (4)
  - Neuralgia [Unknown]
  - Pain [Unknown]
  - Anxiety [Unknown]
  - Arthralgia [Unknown]

NARRATIVE: CASE EVENT DATE: 201701
